FAERS Safety Report 8922598 (Version 1)
Quarter: 2012Q4

REPORT INFORMATION
  Report Type: 
  Country: US (occurrence: US)
  Receive Date: 20121123
  Receipt Date: 20121123
  Transmission Date: 20130627
  Serious: Yes (Other)
  Sender: FDA-Public Use
  Company Number: US-PFIZER INC-2012290483

PATIENT
  Age: 92 Year
  Sex: Female
  Weight: 59 kg

DRUGS (2)
  1. XALATAN [Suspect]
     Indication: GLAUCOMA
     Dosage: one drop in each eye, 1x/day
     Route: 047
     Dates: start: 2003
  2. SYNTHROID [Concomitant]
     Indication: THYROID DISORDER NOS
     Dosage: UNK

REACTIONS (2)
  - Fall [Unknown]
  - Lower limb fracture [Unknown]
